FAERS Safety Report 18797895 (Version 2)
Quarter: 2021Q1

REPORT INFORMATION
  Report Type: Other
  Country: EG (occurrence: EG)
  Receive Date: 20210128
  Receipt Date: 20210209
  Transmission Date: 20210419
  Serious: Yes (Other)
  Sender: FDA-Public Use
  Company Number: EG-ROCHE-2657182

PATIENT
  Age: 30 Year
  Sex: Female
  Weight: 120 kg

DRUGS (1)
  1. OCREVUS [Suspect]
     Active Substance: OCRELIZUMAB
     Indication: MULTIPLE SCLEROSIS
     Route: 042

REACTIONS (15)
  - Balance disorder [Recovering/Resolving]
  - Pain [Not Recovered/Not Resolved]
  - Dyspnoea [Recovering/Resolving]
  - Pyrexia [Recovered/Resolved]
  - Headache [Not Recovered/Not Resolved]
  - Swelling face [Recovered/Resolved]
  - Insomnia [Not Recovered/Not Resolved]
  - Fatigue [Not Recovered/Not Resolved]
  - Off label use [Unknown]
  - Multiple sclerosis [Recovering/Resolving]
  - Disturbance in attention [Recovering/Resolving]
  - Intentional product use issue [Unknown]
  - Pharyngeal swelling [Recovered/Resolved]
  - Gait disturbance [Not Recovered/Not Resolved]
  - Hypoacusis [Recovering/Resolving]

NARRATIVE: CASE EVENT DATE: 20200806
